FAERS Safety Report 5817473-X (Version None)
Quarter: 2008Q3

REPORT INFORMATION
  Report Type: 
  Country: None (occurrence: None)
  Receive Date: 20080722
  Receipt Date: 20080705
  Transmission Date: 20090109
  Serious: Yes (Other)
  Sender: FDA-Public Use
  Company Number: CA-BAYER-CA-2007-023880

PATIENT
  Age: 59 Year
  Sex: Female
  Weight: 75 kg

DRUGS (6)
  1. BETASERON [Suspect]
     Indication: SECONDARY PROGRESSIVE MULTIPLE SCLEROSIS
     Dosage: TOTAL DAILY DOSE: 4 MIU
     Route: 058
     Dates: start: 20070626
  2. BETASERON [Suspect]
     Dosage: TOTAL DAILY DOSE: 8 MIU
     Route: 058
     Dates: start: 20070101, end: 20080505
  3. ADVIL [Concomitant]
     Route: 048
  4. BACLOFEN [Concomitant]
     Indication: MUSCLE SPASMS
     Route: 048
  5. GABAPENTIN [Concomitant]
     Indication: NEURALGIA
     Route: 048
  6. TYLENOL [Concomitant]
     Route: 048

REACTIONS (9)
  - GAIT DISTURBANCE [None]
  - HYPOAESTHESIA [None]
  - INFLUENZA LIKE ILLNESS [None]
  - JOINT RANGE OF MOTION DECREASED [None]
  - MOBILITY DECREASED [None]
  - MUSCLE RIGIDITY [None]
  - MUSCULAR WEAKNESS [None]
  - MUSCULOSKELETAL STIFFNESS [None]
  - SENSATION OF HEAVINESS [None]
